FAERS Safety Report 8313322-9 (Version None)
Quarter: 2012Q2

REPORT INFORMATION
  Report Type: 
  Country: None (occurrence: None)
  Receive Date: 20120426
  Receipt Date: 20120412
  Transmission Date: 20120825
  Serious: Yes (Hospitalization, Other)
  Sender: FDA-Public Use
  Company Number: PHEH2012US002004

PATIENT
  Sex: Male

DRUGS (3)
  1. SANDIMMUNE [Suspect]
     Indication: RENAL TRANSPLANT
     Dosage: 200 MG, BID
     Route: 048
     Dates: start: 19940101
  2. MULTI-VITAMIN [Concomitant]
  3. HYDROCODONE BITARTRATE [Suspect]
     Indication: PAIN
     Dosage: 500 MG, QD

REACTIONS (5)
  - ATRIAL FIBRILLATION [None]
  - CHEST INJURY [None]
  - CHEST PAIN [None]
  - RENAL FAILURE [None]
  - HEART RATE INCREASED [None]
